FAERS Safety Report 19777486 (Version 1)
Quarter: 2021Q3

REPORT INFORMATION
  Report Type: Spontaneous
  Country: IT (occurrence: IT)
  Receive Date: 20210902
  Receipt Date: 20210902
  Transmission Date: 20211014
  Serious: Yes (Other)
  Sender: FDA-Public Use
  Company Number: IT-AUROBINDO-AUR-APL-2021-028774

PATIENT
  Age: 6 Year
  Sex: Female

DRUGS (2)
  1. CETIRIZINE [Suspect]
     Active Substance: CETIRIZINE HYDROCHLORIDE
     Indication: PRODUCT USED FOR UNKNOWN INDICATION
     Dosage: UNK
     Route: 065
  2. ACETYLSALICYLIC ACID [Suspect]
     Active Substance: ASPIRIN
     Indication: ANAPHYLACTIC REACTION
     Dosage: 10 MILLIGRAM/KILOGRAM
     Route: 065

REACTIONS (9)
  - Rhinorrhoea [Unknown]
  - Conjunctival oedema [Unknown]
  - Anaphylactic reaction [Unknown]
  - Cough [Unknown]
  - Throat tightness [Unknown]
  - Nasal obstruction [Unknown]
  - Wheezing [Unknown]
  - Product use in unapproved indication [Unknown]
  - Angioedema [Unknown]
